FAERS Safety Report 25256115 (Version 3)
Quarter: 2025Q2

REPORT INFORMATION
  Report Type: Spontaneous
  Country: JP (occurrence: JP)
  Receive Date: 20250430
  Receipt Date: 20250612
  Transmission Date: 20250717
  Serious: Yes (Other)
  Sender: MERCK SHARP & DOHME LLC
  Company Number: JP-009507513-2270471

PATIENT
  Age: 8 Decade
  Sex: Male

DRUGS (2)
  1. KEYTRUDA [Suspect]
     Active Substance: PEMBROLIZUMAB
     Indication: Renal cell carcinoma
     Dosage: 200 MG X1 ONCE/3 WEEKS
     Route: 041
     Dates: start: 20250130, end: 20250312
  2. LENVIMA [Suspect]
     Active Substance: LENVATINIB
     Indication: Renal cell carcinoma
     Dosage: 20 MG X1/ DAY
     Route: 048
     Dates: start: 20250130, end: 20250312

REACTIONS (5)
  - Immune-mediated hypothyroidism [Recovering/Resolving]
  - Colitis [Recovered/Resolved]
  - Platelet count decreased [Recovering/Resolving]
  - Hyponatraemia [Recovering/Resolving]
  - Immune-mediated hepatic disorder [Recovering/Resolving]

NARRATIVE: CASE EVENT DATE: 20250313
